FAERS Safety Report 11072089 (Version 1)
Quarter: 2015Q2

REPORT INFORMATION
  Report Type: Spontaneous
  Country: US (occurrence: None)
  Receive Date: 20150427
  Receipt Date: 20150427
  Transmission Date: 20150821
  Serious: Yes (Other)
  Sender: FDA-Public Use
  Company Number: None

PATIENT
  Age: 76 Year
  Sex: Male

DRUGS (8)
  1. FLUTICASONE [Concomitant]
     Active Substance: FLUTICASONE\FLUTICASONE PROPIONATE
  2. DONEPEZIL [Concomitant]
     Active Substance: DONEPEZIL
  3. METOCLOPRAMIDE. [Concomitant]
     Active Substance: METOCLOPRAMIDE
  4. DONEPEZIL 10 MG [Suspect]
     Active Substance: DONEPEZIL HYDROCHLORIDE
     Indication: DEMENTIA ALZHEIMER^S TYPE
     Dosage: 1 TABLET QD ORAL
     Route: 048
  5. AMITRIPTYLINE [Concomitant]
     Active Substance: AMITRIPTYLINE
  6. ROPINIROLE. [Concomitant]
     Active Substance: ROPINIROLE
  7. FUROSEMIDE. [Concomitant]
     Active Substance: FUROSEMIDE
  8. OMEPRAZOLE. [Concomitant]
     Active Substance: OMEPRAZOLE

REACTIONS (12)
  - Drug ineffective [None]
  - Asthenia [None]
  - Hiccups [None]
  - Urosepsis [None]
  - Tachycardia [None]
  - Abdominal pain upper [None]
  - Acute kidney injury [None]
  - Aggression [None]
  - Impulsive behaviour [None]
  - Eructation [None]
  - Hypotension [None]
  - Cognitive disorder [None]

NARRATIVE: CASE EVENT DATE: 20140402
